FAERS Safety Report 9729701 (Version 1)
Quarter: 2013Q4

REPORT INFORMATION
  Report Type: Spontaneous
  Country: BR (occurrence: BR)
  Receive Date: 20131204
  Receipt Date: 20131204
  Transmission Date: 20140711
  Serious: Yes (Hospitalization)
  Sender: FDA-Public Use
  Company Number: BR-009507513-1311BRA011919

PATIENT
  Age: 36 Year
  Sex: Female
  Weight: 51 kg

DRUGS (4)
  1. NUVARING [Suspect]
     Indication: CONTRACEPTION
     Dosage: UNK
     Route: 067
     Dates: start: 2009, end: 2010
  2. NUVARING [Suspect]
     Indication: DYSMENORRHOEA
     Dosage: UNK
     Route: 067
     Dates: start: 2011, end: 2012
  3. NUVARING [Suspect]
     Dosage: UNK
     Route: 067
     Dates: start: 201308
  4. MIRENA [Concomitant]
     Dosage: UNK
     Route: 015
     Dates: start: 201209, end: 201308

REACTIONS (15)
  - Nodule [Recovered/Resolved]
  - Endometriosis [Recovered/Resolved]
  - Mass excision [Recovered/Resolved]
  - Endometriosis ablation [Recovered/Resolved]
  - Metrorrhagia [Recovered/Resolved]
  - Abnormal withdrawal bleeding [Recovered/Resolved]
  - Abdominal pain [Not Recovered/Not Resolved]
  - Pain in extremity [Not Recovered/Not Resolved]
  - Back pain [Not Recovered/Not Resolved]
  - Dysmenorrhoea [Recovered/Resolved]
  - Vulvovaginal discomfort [Not Recovered/Not Resolved]
  - Device expulsion [Not Recovered/Not Resolved]
  - Drug administration error [Unknown]
  - Drug administration error [Unknown]
  - Off label use [Unknown]
